FAERS Safety Report 23696646 (Version 1)
Quarter: 2024Q2

REPORT INFORMATION
  Report Type: Spontaneous
  Country: JP (occurrence: JP)
  Receive Date: 20240402
  Receipt Date: 20240402
  Transmission Date: 20240716
  Serious: Yes (Other)
  Sender: FDA-Public Use
  Company Number: JP-CHUGAI-2024009944

PATIENT
  Age: 63 Year
  Sex: Female

DRUGS (6)
  1. KADCYLA [Suspect]
     Active Substance: ADO-TRASTUZUMAB EMTANSINE
     Indication: Breast cancer
     Route: 065
  2. ELDECALCITOL [Suspect]
     Active Substance: ELDECALCITOL
     Indication: Osteoporosis
     Route: 065
  3. DEXAMETHASONE SODIUM PHOSPHATE [Concomitant]
     Active Substance: DEXAMETHASONE PHOSPHATE\DEXAMETHASONE SODIUM PHOSPHATE
     Indication: Breast cancer
     Dosage: UNK MILLIGRAM
  4. URSO [Concomitant]
     Active Substance: URSODIOL
     Indication: Non-alcoholic fatty liver
     Dosage: UNK
  5. EPL [POLYENE PHOSPHATIDYLCHOLINE] [Concomitant]
     Indication: Non-alcoholic fatty liver
     Dosage: UNK
  6. POLAPREZINC [Concomitant]
     Active Substance: POLAPREZINC
     Indication: Gastritis
     Dosage: UNK

REACTIONS (2)
  - Pulmonary fibrosis [Unknown]
  - Interstitial lung disease [Unknown]

NARRATIVE: CASE EVENT DATE: 20230901
